FAERS Safety Report 6327072-1 (Version None)
Quarter: 2009Q3

REPORT INFORMATION
  Report Type: 
  Country: None (occurrence: None)
  Receive Date: 20090818
  Receipt Date: 20090619
  Transmission Date: 20100115
  Serious: No
  Sender: FDA-Public Use
  Company Number: WAES 0906USA03878

PATIENT
  Sex: Male

DRUGS (3)
  1. JANUVIA [Suspect]
     Dosage: PO
     Route: 048
  2. LISINOPRIL [Suspect]
     Dosage: PO
     Route: 048
  3. VIAGRA [Concomitant]

REACTIONS (2)
  - BLOOD PRESSURE DECREASED [None]
  - DRUG INEFFECTIVE [None]
